FAERS Safety Report 5355778-X (Version None)
Quarter: 2007Q2

REPORT INFORMATION
  Report Type: 
  Country: None (occurrence: None)
  Receive Date: 20070613
  Receipt Date: 20070529
  Transmission Date: 20071010
  Serious: Yes (Other)
  Sender: FDA-Public Use
  Company Number: SE-ELI_LILLY_AND_COMPANY-SE200705006910

PATIENT
  Age: 59 Year
  Sex: Female

DRUGS (4)
  1. LEVAXIN [Concomitant]
     Dosage: 0.15 MG, DAILY (1/D)
     Dates: start: 20000101
  2. CITALOPRAM HYDROBROMIDE [Concomitant]
     Indication: ANXIETY
     Dosage: 20 MG, DAILY (1/D)
     Dates: start: 19960101
  3. KALCIPOS-D [Concomitant]
     Indication: OSTEOPOROSIS
     Dosage: 1 TABLET /D
     Dates: start: 20000101
  4. TERIPARATIDE [Suspect]
     Dosage: 20 UG, DAILY (1/D)
     Dates: start: 20050620, end: 20060912

REACTIONS (1)
  - MALIGNANT MELANOMA [None]
